FAERS Safety Report 12633850 (Version 1)
Quarter: 2016Q3

REPORT INFORMATION
  Report Type: Spontaneous
  Country: JP (occurrence: JP)
  Receive Date: 20160808
  Receipt Date: 20160808
  Transmission Date: 20161109
  Serious: Yes (Hospitalization, Other)
  Sender: FDA-Public Use
  Company Number: JP-BAYER-2016-147667

PATIENT
  Age: 23 Year
  Sex: Female

DRUGS (3)
  1. PREDNISOLONE. [Concomitant]
     Active Substance: PREDNISOLONE
     Dosage: UNK
     Route: 048
  2. AZATHIOPRINE. [Concomitant]
     Active Substance: AZATHIOPRINE
     Dosage: UNK
     Route: 048
  3. ACETYLSALICYLIC ACID({=100 MG) [Suspect]
     Active Substance: ASPIRIN
     Route: 048

REACTIONS (6)
  - Premature delivery [Recovered/Resolved]
  - Loss of consciousness [None]
  - Maternal exposure during pregnancy [Recovered/Resolved]
  - HELLP syndrome [Recovering/Resolving]
  - Blood pressure decreased [None]
  - Threatened labour [Recovered/Resolved]
